FAERS Safety Report 13057070 (Version 1)
Quarter: 2016Q4

REPORT INFORMATION
  Report Type: Spontaneous
  Country: TW (occurrence: TW)
  Receive Date: 20161222
  Receipt Date: 20161222
  Transmission Date: 20170207
  Serious: Yes (Other)
  Sender: FDA-Public Use
  Company Number: PHHY2016TW140428

PATIENT
  Age: 40 Year
  Sex: Male

DRUGS (6)
  1. LORAZEPAM. [Interacting]
     Active Substance: LORAZEPAM
     Indication: PRODUCT USED FOR UNKNOWN INDICATION
     Dosage: 1 MG, TID
     Route: 065
     Dates: start: 20110519, end: 20110522
  2. CLOZAPINE. [Interacting]
     Active Substance: CLOZAPINE
     Indication: MENTAL DISORDER
     Dosage: 100 MG (0.5/HS)
     Route: 065
     Dates: start: 20110519, end: 20110522
  3. CLOZAPINE. [Interacting]
     Active Substance: CLOZAPINE
     Indication: ALCOHOL WITHDRAWAL SYNDROME
  4. ZOLPIDEM [Concomitant]
     Active Substance: ZOLPIDEM\ZOLPIDEM TARTRATE
     Indication: MENTAL DISORDER
     Dosage: 10 MG, QHS
     Route: 065
  5. FLURAZEPAM [Concomitant]
     Active Substance: FLURAZEPAM\FLURAZEPAM HYDROCHLORIDE
     Indication: PRODUCT USED FOR UNKNOWN INDICATION
     Dosage: 2 DF, QHS
     Route: 065
  6. VALPROIC ACID SANDOZ [Suspect]
     Active Substance: VALPROIC ACID
     Indication: MENTAL DISORDER
     Dosage: 500 MG, QHS
     Route: 065

REACTIONS (5)
  - Drug interaction [Unknown]
  - Upper respiratory tract infection [Unknown]
  - Tremor [Unknown]
  - Product use issue [Unknown]
  - Pyrexia [Unknown]

NARRATIVE: CASE EVENT DATE: 20110522
